FAERS Safety Report 24768725 (Version 5)
Quarter: 2025Q2

REPORT INFORMATION
  Report Type: Report from Study
  Country: US (occurrence: US)
  Receive Date: 20241224
  Receipt Date: 20250630
  Transmission Date: 20250716
  Serious: Yes (Hospitalization, Other)
  Sender: BIOGEN
  Company Number: US-BIOGEN-2024BI01294563

PATIENT
  Sex: Female

DRUGS (6)
  1. SKYCLARYS [Suspect]
     Active Substance: OMAVELOXOLONE
     Indication: Friedreich^s ataxia
     Dosage: 50MG, 3 CAPSULES ONCE DAILY
     Route: 050
     Dates: start: 20240301
  2. SKYCLARYS [Suspect]
     Active Substance: OMAVELOXOLONE
     Dosage: 50MG, 3 CAPSULES ONCE DAILY
     Route: 050
     Dates: start: 20240301
  3. SKYCLARYS [Suspect]
     Active Substance: OMAVELOXOLONE
     Dosage: 50MG, 3 CAPSULES ONCE DAILY, ORAL
     Route: 050
     Dates: start: 20240301
  4. ATORVASTATIN [Suspect]
     Active Substance: ATORVASTATIN
     Indication: Product used for unknown indication
     Route: 050
  5. FLUVASTATIN [Concomitant]
     Active Substance: FLUVASTATIN SODIUM
     Indication: Product used for unknown indication
     Route: 050
  6. BOTOX [Concomitant]
     Active Substance: ONABOTULINUMTOXINA
     Indication: Product used for unknown indication
     Route: 050

REACTIONS (24)
  - Palpitations [Unknown]
  - Troponin increased [Unknown]
  - Lower limb fracture [Unknown]
  - Deafness [Unknown]
  - Fall [Recovered/Resolved]
  - Gait inability [Unknown]
  - Visual impairment [Unknown]
  - Hypoacusis [Unknown]
  - Myalgia [Not Recovered/Not Resolved]
  - Chest pain [Not Recovered/Not Resolved]
  - Angina pectoris [Not Recovered/Not Resolved]
  - Heart rate increased [Not Recovered/Not Resolved]
  - Blood triglycerides increased [Not Recovered/Not Resolved]
  - Vertigo [Unknown]
  - Gastrointestinal infection [Unknown]
  - Ear infection [Unknown]
  - Migraine [Unknown]
  - Dehydration [Unknown]
  - Product dispensing error [Unknown]
  - Blood cholesterol increased [Not Recovered/Not Resolved]
  - Diarrhoea [Unknown]
  - Headache [Not Recovered/Not Resolved]
  - Nausea [Unknown]
  - Influenza [Unknown]
